FAERS Safety Report 12380681 (Version 1)
Quarter: 2016Q2

REPORT INFORMATION
  Report Type: Spontaneous
  Country: US (occurrence: US)
  Receive Date: 20160518
  Receipt Date: 20160518
  Transmission Date: 20160815
  Serious: Yes (Other)
  Sender: FDA-Public Use
  Company Number: US-LUPIN PHARMACEUTICALS INC.-E2B_00005422

PATIENT
  Sex: Female
  Weight: 56.75 kg

DRUGS (1)
  1. ENSKYCE [Suspect]
     Active Substance: DESOGESTREL\ETHINYL ESTRADIOL
     Indication: CONTRACEPTION
     Dosage: 0.15 MG/0.03 MG
     Route: 048
     Dates: start: 2013

REACTIONS (1)
  - Coeliac disease [Not Recovered/Not Resolved]
